FAERS Safety Report 10809696 (Version 1)
Quarter: 2015Q1

REPORT INFORMATION
  Report Type: Report from Study
  Country: US (occurrence: US)
  Receive Date: 20150217
  Receipt Date: 20150217
  Transmission Date: 20150721
  Serious: No
  Sender: FDA-Public Use
  Company Number: US-ABBVIE-14K-163-1227684-00

PATIENT
  Sex: Female

DRUGS (4)
  1. HUMIRA [Suspect]
     Active Substance: ADALIMUMAB
     Indication: RHEUMATOID ARTHRITIS
  2. METHOTREXATE [Concomitant]
     Active Substance: METHOTREXATE
     Indication: RHEUMATOID ARTHRITIS
  3. PREDNISONE. [Concomitant]
     Active Substance: PREDNISONE
     Indication: RHEUMATOID ARTHRITIS
     Dosage: 3 COURSES
  4. HUMIRA [Suspect]
     Active Substance: ADALIMUMAB
     Dates: start: 20140415

REACTIONS (3)
  - Onychomycosis [Not Recovered/Not Resolved]
  - Rheumatoid arthritis [Unknown]
  - Anxiety [Unknown]

NARRATIVE: CASE EVENT DATE: 2013
